FAERS Safety Report 8138434-4 (Version None)
Quarter: 2012Q1

REPORT INFORMATION
  Report Type: 
  Country: None (occurrence: None)
  Receive Date: 20120215
  Receipt Date: 20120212
  Transmission Date: 20120608
  Serious: No
  Sender: FDA-Public Use
  Company Number: US-TEVA-322498USA

PATIENT
  Sex: Female
  Weight: 54.48 kg

DRUGS (5)
  1. ALIGN PROBIOTIC [Concomitant]
     Indication: SUPPLEMENTATION THERAPY
  2. MULTI-VITAMIN [Concomitant]
     Indication: SUPPLEMENTATION THERAPY
  3. PLAN B ONE-STEP [Suspect]
     Indication: POST COITAL CONTRACEPTION
     Dosage: 1.5 MILLIGRAM;
     Route: 048
     Dates: start: 20120211, end: 20120211
  4. RANITIDINE [Concomitant]
     Indication: GASTROOESOPHAGEAL REFLUX DISEASE
     Dosage: 300 MILLIGRAM;
  5. CLARITIN [Concomitant]
     Indication: HYPERSENSITIVITY

REACTIONS (1)
  - ABDOMINAL PAIN [None]
